FAERS Safety Report 7556265-0 (Version None)
Quarter: 2011Q2

REPORT INFORMATION
  Report Type: 
  Country: None (occurrence: None)
  Receive Date: 20110620
  Receipt Date: 20110613
  Transmission Date: 20111010
  Serious: No
  Sender: FDA-Public Use
  Company Number: US-PFIZER INC-2011129817

PATIENT
  Age: 78 Year
  Sex: Female

DRUGS (1)
  1. ESTRING [Suspect]
     Dosage: 2 MG, EVERY 3 MONTHS(INSERT 1 RING VAGINALLY EVERY 90 DAYS)
     Route: 067

REACTIONS (2)
  - VULVOVAGINAL PAIN [None]
  - VAGINAL HAEMORRHAGE [None]
